FAERS Safety Report 19729267 (Version 1)
Quarter: 2021Q3

REPORT INFORMATION
  Report Type: Report from Study
  Country: None (occurrence: JP)
  Receive Date: 20210821
  Receipt Date: 20210821
  Transmission Date: 20211014
  Serious: Yes (Hospitalization)
  Sender: FDA-Public Use
  Company Number: JP-ABBVIE-20K-087-3376820-00

PATIENT
  Age: 75 Year
  Sex: Female

DRUGS (2)
  1. DUODOPA [Suspect]
     Active Substance: CARBIDOPA\LEVODOPA
  2. DUODOPA [Suspect]
     Active Substance: CARBIDOPA\LEVODOPA
     Indication: PARKINSON^S DISEASE
     Route: 050
     Dates: start: 20200405

REACTIONS (12)
  - Anxiety [Unknown]
  - Drug ineffective [Unknown]
  - Visual impairment [Unknown]
  - Malaise [Unknown]
  - Stoma site odour [Unknown]
  - Stoma site reaction [Unknown]
  - Parkinson^s disease [Not Recovered/Not Resolved]
  - Suture related complication [Unknown]
  - Stoma site extravasation [Unknown]
  - Stoma site discharge [Unknown]
  - Gait disturbance [Not Recovered/Not Resolved]
  - On and off phenomenon [Unknown]

NARRATIVE: CASE EVENT DATE: 2020
